FAERS Safety Report 6423591-8 (Version None)
Quarter: 2009Q4

REPORT INFORMATION
  Report Type: 
  Country: None (occurrence: None)
  Receive Date: 20091028
  Receipt Date: 20091013
  Transmission Date: 20100525
  Serious: Yes (Hospitalization)
  Sender: FDA-Public Use
  Company Number: 1000009173

PATIENT
  Age: 48 Year
  Sex: Female

DRUGS (6)
  1. MILNACIPRAN (MILNACIPRAN HYDROCHLORIDE) (CAPSULES) [Suspect]
     Indication: DEPRESSION
     Dosage: 150 MG (50 MG,3 IN 1 D),ORAL
     Route: 048
     Dates: end: 20090813
  2. DAFALGAN (PARACETAMOL) (CAPULES) [Suspect]
     Dosage: (500 MG),ORAL
     Route: 048
     Dates: end: 20090813
  3. NOCTRAN 10 (10 MILLIGRAM, TABLETS) [Suspect]
     Dosage: ORAL
     Route: 048
     Dates: end: 20090813
  4. XANAX [Suspect]
     Dosage: ORAL
     Route: 048
     Dates: end: 20090813
  5. ZYPREXA [Suspect]
     Dosage: 5 MG (5 MG,1 IN 1 D),ORAL
     Route: 048
     Dates: end: 20090813
  6. IBUPROFEN [Suspect]
     Dosage: (400 MG),ORAL
     Route: 048
     Dates: end: 20090813

REACTIONS (18)
  - BLOOD CREATINE INCREASED [None]
  - BLOOD LACTATE DEHYDROGENASE INCREASED [None]
  - BLOOD POTASSIUM DECREASED [None]
  - BLOOD POTASSIUM INCREASED [None]
  - BLOOD PRESSURE SYSTOLIC DECREASED [None]
  - BLOOD SODIUM DECREASED [None]
  - COAGULATION FACTOR V LEVEL DECREASED [None]
  - COMA [None]
  - CYTOLYTIC HEPATITIS [None]
  - DRUG TOXICITY [None]
  - HAEMOGLOBIN DECREASED [None]
  - LUNG DISORDER [None]
  - MULTIPLE DRUG OVERDOSE INTENTIONAL [None]
  - PROTHROMBIN TIME PROLONGED [None]
  - PULMONARY EMBOLISM [None]
  - PYREXIA [None]
  - RENAL FAILURE ACUTE [None]
  - SUICIDE ATTEMPT [None]
